FAERS Safety Report 20602200 (Version 1)
Quarter: 2022Q1

REPORT INFORMATION
  Report Type: Spontaneous
  Country: US (occurrence: None)
  Receive Date: 20220315
  Receipt Date: 20220315
  Transmission Date: 20220423
  Serious: Yes (Other)
  Sender: FDA-Public Use
  Company Number: None

PATIENT
  Age: 73 Year
  Sex: Female
  Weight: 103.5 kg

DRUGS (2)
  1. ORBACTIV [Suspect]
     Active Substance: ORITAVANCIN
     Indication: Osteomyelitis
     Dosage: OTHER FREQUENCY : ONE TIME;?
     Route: 041
     Dates: start: 20220314, end: 20220314
  2. DEXTROSE, UNSPECIFIED FORM [Concomitant]
     Active Substance: DEXTROSE, UNSPECIFIED FORM
     Dates: start: 20220314, end: 20220314

REACTIONS (4)
  - Pruritus [None]
  - Rash [None]
  - Urticaria [None]
  - Infusion related reaction [None]

NARRATIVE: CASE EVENT DATE: 20220315
